FAERS Safety Report 25633098 (Version 2)
Quarter: 2025Q3

REPORT INFORMATION
  Report Type: Spontaneous
  Country: GB (occurrence: GB)
  Receive Date: 20250801
  Receipt Date: 20250814
  Transmission Date: 20251020
  Serious: Yes (Other)
  Sender: RANBAXY
  Company Number: GB-SUN PHARMACEUTICAL INDUSTRIES LTD-2025RR-519377

PATIENT
  Age: 14 Year
  Sex: Female
  Weight: 58 kg

DRUGS (5)
  1. ISOTRETINOIN [Suspect]
     Active Substance: ISOTRETINOIN
     Indication: Adverse drug reaction
     Route: 065
     Dates: start: 20240605, end: 20250609
  2. ISOTRETINOIN [Suspect]
     Active Substance: ISOTRETINOIN
     Route: 065
     Dates: start: 20240605
  3. ISOTRETINOIN [Suspect]
     Active Substance: ISOTRETINOIN
     Route: 065
     Dates: start: 202408
  4. Multivitamin gummy [Concomitant]
     Indication: Product used for unknown indication
     Route: 065
  5. Levest [Concomitant]
     Indication: Product used for unknown indication
     Route: 065

REACTIONS (7)
  - Depression [Not Recovered/Not Resolved]
  - Epistaxis [Unknown]
  - Anxiety [Unknown]
  - Suicidal ideation [Unknown]
  - Alopecia [Unknown]
  - Arthralgia [Unknown]
  - Depressed mood [Unknown]
